FAERS Safety Report 7434269-6 (Version None)
Quarter: 2011Q2

REPORT INFORMATION
  Report Type: 
  Country: None (occurrence: None)
  Receive Date: 20110425
  Receipt Date: 20110419
  Transmission Date: 20111010
  Serious: No
  Sender: FDA-Public Use
  Company Number: US-PFIZER INC-2011085824

PATIENT
  Sex: Female
  Weight: 47.6 kg

DRUGS (5)
  1. DIGOXIN [Concomitant]
     Dosage: UNK
  2. ZOCOR [Concomitant]
     Dosage: UNK
  3. NEXIUM [Concomitant]
     Dosage: UNK
  4. CALCIUM [Concomitant]
     Dosage: UNK
  5. PRISTIQ [Suspect]
     Indication: DEPRESSION
     Dosage: 100 MG, 1X/DAY
     Route: 048
     Dates: start: 20110101

REACTIONS (3)
  - ABNORMAL DREAMS [None]
  - MALAISE [None]
  - HYPERHIDROSIS [None]
